FAERS Safety Report 9343069 (Version 2)
Quarter: 2014Q1

REPORT INFORMATION
  Report Type: Spontaneous
  Country: US (occurrence: US)
  Receive Date: 20130611
  Receipt Date: 20140312
  Transmission Date: 20141002
  Serious: Yes (Hospitalization, Other)
  Sender: FDA-Public Use
  Company Number: US-B.I. PHARMACEUTICALS,INC./RIDGEFIELD-2013-BI-16257BP

PATIENT
  Age: 67 Year
  Sex: Female
  Weight: 79.83 kg

DRUGS (7)
  1. PRADAXA [Suspect]
     Indication: ATRIAL FIBRILLATION
     Route: 065
     Dates: start: 20110602, end: 20111230
  2. COMPAZINE [Concomitant]
     Route: 048
  3. GLUCOPHAGE [Concomitant]
     Route: 048
  4. HYDROCHLOROTHIAZIDE [Concomitant]
     Route: 048
  5. LANTUS [Concomitant]
     Route: 058
  6. MULTAQ [Concomitant]
     Route: 048
  7. SIMVASTATIN [Concomitant]
     Route: 065

REACTIONS (6)
  - Subdural haemorrhage [Unknown]
  - Hip fracture [Unknown]
  - Deafness [Unknown]
  - Urinary bladder haemorrhage [Unknown]
  - Fall [Unknown]
  - Ear injury [Unknown]
